FAERS Safety Report 5394692-0 (Version None)
Quarter: 2007Q3

REPORT INFORMATION
  Report Type: 
  Country: None (occurrence: None)
  Receive Date: 20070723
  Receipt Date: 20070712
  Transmission Date: 20080115
  Serious: Yes (Other)
  Sender: FDA-Public Use
  Company Number: US-PFIZER INC-2006152224

PATIENT
  Sex: Female
  Weight: 131.5 kg

DRUGS (3)
  1. CELEBREX [Suspect]
  2. BEXTRA [Suspect]
  3. VIOXX [Suspect]

REACTIONS (3)
  - DYSPNOEA [None]
  - HYPERTENSION [None]
  - KIDNEY INFECTION [None]
